FAERS Safety Report 16313647 (Version 2)
Quarter: 2020Q3

REPORT INFORMATION
  Report Type: Report from Study
  Country: TR (occurrence: TR)
  Receive Date: 20190515
  Receipt Date: 20190529
  Transmission Date: 20201105
  Serious: Yes (Other)
  Sender: FDA-Public Use
  Company Number: TR-PFIZER INC-2019204678

PATIENT
  Age: 49 Year
  Sex: Female

DRUGS (3)
  1. LANSOPRAZOL [Concomitant]
     Active Substance: LANSOPRAZOLE
     Indication: GASTRITIS
     Dosage: 30 MG, 1X/DAY
     Route: 048
  2. TENSART [CANDESARTAN CILEXETIL] [Concomitant]
     Indication: HYPERTENSION
     Dosage: 8 MG, 1X/DAY
     Route: 048
  3. TALAZOPARIB. [Suspect]
     Active Substance: TALAZOPARIB
     Dosage: 1 MG, 1X/DAY
     Route: 048

REACTIONS (4)
  - Neutropenia [Unknown]
  - Pyrexia [Unknown]
  - Pneumonia [Recovered/Resolved]
  - Urinary tract infection [Recovered/Resolved]

NARRATIVE: CASE EVENT DATE: 20190503
